FAERS Safety Report 8095360-7 (Version None)
Quarter: 2012Q1

REPORT INFORMATION
  Report Type: 
  Country: None (occurrence: None)
  Receive Date: 20120131
  Receipt Date: 20120120
  Transmission Date: 20120608
  Serious: Yes (Other)
  Sender: FDA-Public Use
  Company Number: US-NOVOPROD-343583

PATIENT
  Sex: Female

DRUGS (1)
  1. LEVEMIR [Suspect]
     Indication: DIABETES MELLITUS
     Dosage: UNK
     Route: 058

REACTIONS (3)
  - EYE HAEMORRHAGE [None]
  - SMALL CELL CARCINOMA [None]
  - BLOOD GLUCOSE INCREASED [None]
